FAERS Safety Report 4339620-1 (Version None)
Quarter: 2004Q2

REPORT INFORMATION
  Report Type: 
  Country: None (occurrence: None)
  Receive Date: 20040415
  Receipt Date: 20030725
  Transmission Date: 20050107
  Serious: Yes (Hospitalization)
  Sender: FDA-Public Use
  Company Number: DE-MERCK-0308DEU00029B1

PATIENT
  Age: 0 Day
  Sex: Male
  Weight: 3 kg

DRUGS (14)
  1. ALBUTEROL SULFATE [Concomitant]
  2. FOSAMAX [Suspect]
     Indication: OSTEOPOROSIS
     Dates: start: 19990101, end: 20030701
  3. DEXAMETHASONE [Suspect]
     Indication: ASTHMA
  4. FLUTICASONE PROPIONATE [Concomitant]
  5. FORMOTEROL FUMARATE [Concomitant]
  6. FUROSEMIDE [Concomitant]
  7. GLOBULIN, IMMUNE [Concomitant]
  8. INTERFERON (UNSPECIFIED) [Concomitant]
  9. IPRATROPIUM BROMIDE [Concomitant]
  10. MONTELUKAST SODIUM [Concomitant]
  11. RIBAVIRIN [Concomitant]
  12. TERBUTALINE SULFATE [Concomitant]
  13. THEOPHYLLINE [Concomitant]
  14. TORSEMIDE [Concomitant]

REACTIONS (8)
  - BLOOD CORTISOL DECREASED [None]
  - CAESAREAN SECTION [None]
  - GESTATIONAL DIABETES [None]
  - HAEMANGIOMA OF SKIN [None]
  - HYPOCALCAEMIA [None]
  - MATERNAL DRUGS AFFECTING FOETUS [None]
  - PREMATURE BABY [None]
  - TRANSIENT TACHYPNOEA OF THE NEWBORN [None]
